FAERS Safety Report 18610233 (Version 1)
Quarter: 2020Q4

REPORT INFORMATION
  Report Type: Spontaneous
  Country: US (occurrence: US)
  Receive Date: 20201213
  Receipt Date: 20201213
  Transmission Date: 20210114
  Serious: Yes (Other)
  Sender: FDA-Public Use
  Company Number: None

PATIENT
  Age: 63 Year
  Sex: Male
  Weight: 95 kg

DRUGS (1)
  1. BAMLANIVIMAB INJECTION [Suspect]
     Active Substance: BAMLANIVIMAB
     Indication: COVID-19

REACTIONS (6)
  - Nausea [None]
  - Hypotension [None]
  - Bradycardia [None]
  - Presyncope [None]
  - Intentional product use issue [None]
  - Hyperhidrosis [None]

NARRATIVE: CASE EVENT DATE: 20201213
